FAERS Safety Report 5580407-X (Version None)
Quarter: 2008Q1

REPORT INFORMATION
  Report Type: 
  Country: None (occurrence: None)
  Receive Date: 20080103
  Receipt Date: 20080102
  Transmission Date: 20080703
  Serious: Yes (Other)
  Sender: FDA-Public Use
  Company Number: A0700995A

PATIENT
  Sex: Female

DRUGS (4)
  1. ALLI [Suspect]
     Dates: start: 20071224, end: 20071230
  2. DILANTIN [Concomitant]
  3. KEPPRA [Concomitant]
  4. DIABETES MEDICATION [Concomitant]

REACTIONS (4)
  - CONVULSION [None]
  - HEADACHE [None]
  - LOSS OF CONSCIOUSNESS [None]
  - URINARY INCONTINENCE [None]
